FAERS Safety Report 13798014 (Version 2)
Quarter: 2017Q4

REPORT INFORMATION
  Report Type: Spontaneous
  Country: US (occurrence: US)
  Receive Date: 20170727
  Receipt Date: 20171103
  Transmission Date: 20180320
  Serious: No
  Sender: FDA-Public Use
  Company Number: US-PFIZER INC-2017324249

PATIENT
  Age: 59 Year
  Sex: Female
  Weight: 81.65 kg

DRUGS (5)
  1. LYRICA [Suspect]
     Active Substance: PREGABALIN
     Dosage: 150 MG, 2X/DAY
  2. LYRICA [Suspect]
     Active Substance: PREGABALIN
     Indication: BURNING SENSATION
     Dosage: 150 MG, 2X/DAY
  3. LYRICA [Suspect]
     Active Substance: PREGABALIN
     Dosage: 100 AM; 25 DINNER/PM; 250 HS
  4. LYRICA [Suspect]
     Active Substance: PREGABALIN
     Dosage: 350 MG, DAILY (150 MG IN THE MORNING, 150 MG AT NIGHT, 50 MG IN THE EVENING BEFORE GOING TO THE GYM)
  5. LYRICA [Suspect]
     Active Substance: PREGABALIN
     Indication: DIABETIC NEUROPATHY
     Dosage: TRY AN EXTRA 50 MG DOSE

REACTIONS (7)
  - Feeling abnormal [Recovered/Resolved]
  - Sluggishness [Unknown]
  - Fatigue [Unknown]
  - Depression [Not Recovered/Not Resolved]
  - Thought blocking [Recovered/Resolved]
  - Pain in extremity [Not Recovered/Not Resolved]
  - Hangover [Recovered/Resolved]
